FAERS Safety Report 6140134-7 (Version None)
Quarter: 2009Q1

REPORT INFORMATION
  Report Type: 
  Country: None (occurrence: None)
  Receive Date: 20090324
  Receipt Date: 20090316
  Transmission Date: 20090719
  Serious: Yes (Other)
  Sender: FDA-Public Use
  Company Number: 225869

PATIENT
  Age: 38 Year
  Sex: Female
  Weight: 59.7 kg

DRUGS (1)
  1. PACLITAXEL [Suspect]
     Indication: BREAST CANCER
     Dosage: 282 MG, DAILY, INTRAVENOUS
     Route: 042
     Dates: start: 20090120

REACTIONS (3)
  - DIZZINESS [None]
  - HOT FLUSH [None]
  - INFUSION SITE REACTION [None]
